FAERS Safety Report 9192185 (Version 1)
Quarter: 2013Q1

REPORT INFORMATION
  Report Type: Spontaneous
  Country: US (occurrence: None)
  Receive Date: 20130326
  Receipt Date: 20130326
  Transmission Date: 20140127
  Serious: Yes (Hospitalization, Disabling, Other)
  Sender: FDA-Public Use
  Company Number: None

PATIENT
  Age: 25 Year
  Sex: Female
  Weight: 56.7 kg

DRUGS (1)
  1. LOESTRIN 24 FE [Suspect]
     Indication: CONTRACEPTION
     Dates: start: 20100101, end: 20120101

REACTIONS (9)
  - Abdominal pain [None]
  - Vomiting [None]
  - Diarrhoea [None]
  - Gallbladder disorder [None]
  - Irritable bowel syndrome [None]
  - Quality of life decreased [None]
  - Fatigue [None]
  - Lethargy [None]
  - Cholecystectomy [None]
